FAERS Safety Report 5856714-X (Version None)
Quarter: 2008Q3

REPORT INFORMATION
  Report Type: 
  Country: None (occurrence: None)
  Receive Date: 20080825
  Receipt Date: 20080815
  Transmission Date: 20090109
  Serious: Yes (Hospitalization)
  Sender: FDA-Public Use
  Company Number: US-ABBOTT-08P-163-0471036-00

PATIENT
  Sex: Male
  Weight: 90.8 kg

DRUGS (3)
  1. HUMIRA [Suspect]
     Indication: RHEUMATOID ARTHRITIS
  2. METOPROLOL SUCCINATE [Concomitant]
     Indication: CARDIAC DISORDER
  3. UNKNOWN CARDIAC MEDICATION [Concomitant]
     Indication: CARDIAC DISORDER

REACTIONS (7)
  - ACCIDENTAL EXPOSURE [None]
  - ARTHRITIS [None]
  - BALANCE DISORDER [None]
  - DIZZINESS [None]
  - FEELING DRUNK [None]
  - GAIT DISTURBANCE [None]
  - INCOHERENT [None]
